FAERS Safety Report 21926319 (Version 1)
Quarter: 2023Q1

REPORT INFORMATION
  Report Type: Spontaneous
  Country: US (occurrence: None)
  Receive Date: 20230129
  Receipt Date: 20230129
  Transmission Date: 20230417
  Serious: Yes (Other)
  Sender: FDA-Public Use
  Company Number: None

PATIENT
  Age: 20 Year
  Sex: Female
  Weight: 56.7 kg

DRUGS (1)
  1. MIRENA [Suspect]
     Active Substance: LEVONORGESTREL
     Dates: start: 20181008, end: 20230128

REACTIONS (9)
  - Mood swings [None]
  - Crying [None]
  - Complication of device removal [None]
  - Fatigue [None]
  - Nausea [None]
  - Dizziness [None]
  - Syncope [None]
  - Impaired driving ability [None]
  - Abdominal pain [None]

NARRATIVE: CASE EVENT DATE: 20230129
